FAERS Safety Report 6431854-5 (Version None)
Quarter: 2009Q4

REPORT INFORMATION
  Report Type: 
  Country: None (occurrence: None)
  Receive Date: 20091108
  Receipt Date: 20091029
  Transmission Date: 20100525
  Serious: Yes (Hospitalization)
  Sender: FDA-Public Use
  Company Number: PHEH2009US14655

PATIENT

DRUGS (2)
  1. EXJADE [Suspect]
     Indication: IRON OVERLOAD
     Dosage: 250 MG, QD
     Route: 048
  2. EXJADE [Suspect]
     Indication: HAEMOSIDEROSIS

REACTIONS (1)
  - TOE AMPUTATION [None]
